FAERS Safety Report 7380388-2 (Version None)
Quarter: 2011Q1

REPORT INFORMATION
  Report Type: 
  Country: None (occurrence: None)
  Receive Date: 20110329
  Receipt Date: 20110318
  Transmission Date: 20110831
  Serious: Yes (Hospitalization)
  Sender: FDA-Public Use
  Company Number: AU-ROCHE-766449

PATIENT
  Age: 33 Year
  Sex: Female

DRUGS (5)
  1. CYCLOSPORINE [Suspect]
     Route: 065
  2. ACCUTANE [Suspect]
     Indication: ACNE
     Route: 065
  3. HUMIRA [Suspect]
     Route: 065
  4. METHOTREXATE [Suspect]
     Route: 065
  5. HYDROXYUREA [Suspect]
     Route: 065

REACTIONS (8)
  - HEPATIC FUNCTION ABNORMAL [None]
  - HIRSUTISM [None]
  - MALAISE [None]
  - CONDITION AGGRAVATED [None]
  - APHASIA [None]
  - MENINGITIS VIRAL [None]
  - CONFUSIONAL STATE [None]
  - PSORIASIS [None]
